FAERS Safety Report 9383682 (Version 1)
Quarter: 2013Q3

REPORT INFORMATION
  Report Type: Spontaneous
  Country: BR (occurrence: BR)
  Receive Date: 20130704
  Receipt Date: 20130704
  Transmission Date: 20140515
  Serious: Yes (Hospitalization)
  Sender: FDA-Public Use
  Company Number: BR-009507513-1307BRA002024

PATIENT
  Age: 26 Year
  Sex: Female
  Weight: 46 kg

DRUGS (1)
  1. MERCILON CONTI [Suspect]
     Indication: CONTRACEPTION
     Dosage: 1 DF, QD
     Route: 048
     Dates: start: 2012

REACTIONS (4)
  - Varicose vein operation [Unknown]
  - Purpura [Not Recovered/Not Resolved]
  - Drug administration error [Unknown]
  - Drug administration error [Unknown]
